FAERS Safety Report 6104953-5 (Version None)
Quarter: 2009Q1

REPORT INFORMATION
  Report Type: 
  Country: None (occurrence: None)
  Receive Date: 20090306
  Receipt Date: 20090226
  Transmission Date: 20090719
  Serious: Yes (Other)
  Sender: FDA-Public Use
  Company Number: BR-ASTRAZENECA-2009UW05499

PATIENT
  Age: 44 Year
  Sex: Male
  Weight: 101 kg

DRUGS (3)
  1. ATACAND [Suspect]
     Indication: HYPERTENSION
     Dosage: 1/2 TABLET
     Route: 048
     Dates: start: 20070101, end: 20080701
  2. ATACAND [Suspect]
     Route: 048
     Dates: start: 20080701, end: 20081101
  3. ATACAND [Suspect]
     Dosage: 1/2 TABLET
     Route: 048
     Dates: start: 20081101

REACTIONS (4)
  - BLOOD PRESSURE INCREASED [None]
  - DIABETES MELLITUS [None]
  - HYPOTENSION [None]
  - WEIGHT DECREASED [None]
